FAERS Safety Report 23531441 (Version 1)
Quarter: 2024Q1

REPORT INFORMATION
  Report Type: Spontaneous
  Country: US (occurrence: US)
  Receive Date: 20240216
  Receipt Date: 20240216
  Transmission Date: 20240410
  Serious: Yes (Other)
  Sender: FDA-Public Use
  Company Number: US-CLOVIS ONCOLOGY-CLO-2022-000929

PATIENT
  Sex: Female

DRUGS (1)
  1. RUBRACA [Suspect]
     Active Substance: RUCAPARIB CAMSYLATE
     Indication: Malignant peritoneal neoplasm
     Dosage: 600 MILLIGRAM, BID
     Route: 048
     Dates: start: 20220425, end: 20221107

REACTIONS (6)
  - Malignant neoplasm progression [Not Recovered/Not Resolved]
  - Thinking abnormal [Unknown]
  - Renal function test abnormal [Recovered/Resolved]
  - Confusional state [Unknown]
  - Pruritus [Unknown]
  - Product dose omission issue [Unknown]

NARRATIVE: CASE EVENT DATE: 20220101
